FAERS Safety Report 4769009-2 (Version None)
Quarter: 2005Q3

REPORT INFORMATION
  Report Type: 
  Country: None (occurrence: None)
  Receive Date: 20050915
  Receipt Date: 20050905
  Transmission Date: 20060218
  Serious: Yes (Other)
  Sender: FDA-Public Use
  Company Number: GB-ABBOTT-05P-167-0310344-00

PATIENT
  Age: 59 Year
  Sex: Female
  Weight: 88.5 kg

DRUGS (2)
  1. REDUCTIL [Suspect]
     Indication: OBESITY
     Route: 048
     Dates: start: 20030306, end: 20050807
  2. CODEINE PHOSPHATE [Concomitant]
     Indication: DRUG USE FOR UNKNOWN INDICATION
     Dates: end: 20050809

REACTIONS (2)
  - BLOOD DISORDER [None]
  - NEUTROPENIA [None]
